FAERS Safety Report 9110523 (Version 1)
Quarter: 2013Q1

REPORT INFORMATION
  Report Type: Spontaneous
  Country: US (occurrence: US)
  Receive Date: 20130219
  Receipt Date: 20130219
  Transmission Date: 20140127
  Serious: No
  Sender: FDA-Public Use
  Company Number: US-BRACCO-008898

PATIENT
  Age: 48 Year
  Sex: Female

DRUGS (4)
  1. BENADRYL [Concomitant]
     Dosage: TAKEN AT BEDTIME
     Route: 048
  2. ISOVUE [Suspect]
     Indication: COMPUTERISED TOMOGRAM
     Route: 042
     Dates: start: 20121022, end: 20121022
  3. ISOVUE [Suspect]
     Indication: PRODUCT USED FOR UNKNOWN INDICATION
     Route: 042
     Dates: start: 20121022, end: 20121022
  4. CLARITIN [Concomitant]
     Dosage: TAKEN IN THE AM
     Route: 048

REACTIONS (2)
  - Occupational exposure to product [Recovered/Resolved]
  - Hypersensitivity [Recovered/Resolved]
